FAERS Safety Report 7634362-9 (Version None)
Quarter: 2011Q3

REPORT INFORMATION
  Report Type: 
  Country: None (occurrence: None)
  Receive Date: 20110725
  Receipt Date: 20110715
  Transmission Date: 20111222
  Serious: Yes (Hospitalization, Other)
  Sender: FDA-Public Use
  Company Number: US-ASTRAZENECA-2010SE48076

PATIENT
  Age: 49 Year
  Sex: Male

DRUGS (8)
  1. SEROQUEL [Suspect]
     Indication: BIPOLAR DISORDER
     Route: 048
  2. DOXEPIN [Concomitant]
  3. IPRATROPIUM BROMIDE [Concomitant]
  4. NEXIUM [Suspect]
     Route: 048
  5. DEPAKOTE [Concomitant]
  6. SINGULAIR [Concomitant]
  7. ALBUTEROL SULFATE AUTOHALER [Concomitant]
  8. TEMAZEPAM [Concomitant]

REACTIONS (8)
  - TRANSIENT ISCHAEMIC ATTACK [None]
  - INSOMNIA [None]
  - EYE DISORDER [None]
  - HEADACHE [None]
  - HEAT STROKE [None]
  - DEPRESSION [None]
  - UPPER-AIRWAY COUGH SYNDROME [None]
  - UPPER RESPIRATORY TRACT INFECTION [None]
